FAERS Safety Report 5805799-5 (Version None)
Quarter: 2008Q3

REPORT INFORMATION
  Report Type: 
  Country: None (occurrence: None)
  Receive Date: 20080708
  Receipt Date: 20080708
  Transmission Date: 20090109
  Serious: Yes (Hospitalization)
  Sender: FDA-Public Use
  Company Number: None

PATIENT
  Age: 57 Year
  Sex: Female
  Weight: 64 kg

DRUGS (1)
  1. DASATINIB  70MG  BMS [Suspect]
     Indication: BREAST CANCER STAGE IV
     Dosage: 70MG BID PO
     Route: 048
     Dates: start: 20080512, end: 20080704

REACTIONS (6)
  - ABDOMINAL PAIN [None]
  - ABDOMINAL PAIN UPPER [None]
  - CHILLS [None]
  - DIARRHOEA [None]
  - POLLAKIURIA [None]
  - PYREXIA [None]
